FAERS Safety Report 25785451 (Version 1)
Quarter: 2025Q3

REPORT INFORMATION
  Report Type: Spontaneous
  Country: CN (occurrence: CN)
  Receive Date: 20250910
  Receipt Date: 20250910
  Transmission Date: 20251021
  Serious: Yes (Other)
  Sender: COHERUS
  Company Number: CN-SHANGHAI JUNSHI BIOSCIENCES CO., LTD.-CN2025015497

PATIENT

DRUGS (2)
  1. TORIPALIMAB [Suspect]
     Active Substance: TORIPALIMAB
     Indication: Transitional cell carcinoma metastatic
     Route: 041
     Dates: start: 20250811, end: 20250811
  2. DISITAMAB VEDOTIN [Suspect]
     Active Substance: DISITAMAB VEDOTIN
     Indication: Transitional cell carcinoma metastatic
     Route: 041
     Dates: start: 20250811, end: 20250811

REACTIONS (7)
  - Tumour necrosis [Unknown]
  - Hyperpyrexia [Unknown]
  - Sopor [Unknown]
  - Asthenia [Unknown]
  - Nausea [Unknown]
  - Bacterial infection [Unknown]
  - Off label use [Unknown]

NARRATIVE: CASE EVENT DATE: 20250811
